FAERS Safety Report 7011416-1 (Version None)
Quarter: 2010Q3

REPORT INFORMATION
  Report Type: 
  Country: None (occurrence: None)
  Receive Date: 20100923
  Receipt Date: 20090115
  Transmission Date: 20110219
  Serious: No
  Sender: FDA-Public Use
  Company Number: US-WYE-H07720709

PATIENT
  Sex: Female
  Weight: 97.61 kg

DRUGS (4)
  1. PREMARIN [Suspect]
     Indication: HYSTERECTOMY
     Route: 048
     Dates: start: 20081217, end: 20090113
  2. LIPITOR [Concomitant]
  3. PRILOSEC [Concomitant]
  4. PROZAC [Concomitant]

REACTIONS (10)
  - ABDOMINAL PAIN UPPER [None]
  - CHEST PAIN [None]
  - DIZZINESS [None]
  - DYSPNOEA [None]
  - HEADACHE [None]
  - INAPPROPRIATE SCHEDULE OF DRUG ADMINISTRATION [None]
  - NAUSEA [None]
  - OEDEMA PERIPHERAL [None]
  - PAIN IN EXTREMITY [None]
  - VISION BLURRED [None]
